FAERS Safety Report 7704597-5 (Version None)
Quarter: 2011Q3

REPORT INFORMATION
  Report Type: 
  Country: None (occurrence: None)
  Receive Date: 20110823
  Receipt Date: 20110527
  Transmission Date: 20111222
  Serious: Yes (Other)
  Sender: FDA-Public Use
  Company Number: US-GLAXOSMITHKLINE-A0930416A

PATIENT
  Age: 35 Year
  Sex: Female
  Weight: 55 kg

DRUGS (2)
  1. TYKERB [Suspect]
     Indication: BREAST CANCER
     Dosage: 1250MG PER DAY
     Route: 065
     Dates: start: 20110520, end: 20110530
  2. CAPECITABINE [Suspect]
     Indication: BREAST NEOPLASM
     Dosage: 4G TWICE PER DAY
     Route: 048

REACTIONS (2)
  - ADVERSE DRUG REACTION [None]
  - DIARRHOEA [None]
